FAERS Safety Report 8892794 (Version 1)
Quarter: 2012Q4

REPORT INFORMATION
  Report Type: 
  Country: US (occurrence: US)
  Receive Date: 20121107
  Receipt Date: 20121107
  Transmission Date: 20130627
  Serious: No
  Sender: FDA-Public Use
  Company Number: US-AMGEN-USASP2011059247

PATIENT
  Age: 74 Year
  Sex: Female
  Weight: 54.42 kg

DRUGS (14)
  1. ENBREL [Suspect]
     Indication: PRODUCT USED FOR UNKNOWN INDICATION
     Dosage: 50 mg, qwk
  2. METHOTREXATE [Concomitant]
     Dosage: 2.5 mg, UNK
  3. PATANASE [Concomitant]
     Dosage: 0.6 %, UNK
  4. LIPITOR [Concomitant]
     Dosage: 10 mg, UNK
  5. SYNTHROID [Concomitant]
     Dosage: 25 mug, UNK
  6. OMEPRAZOLE [Concomitant]
     Dosage: 20 mg, UNK
  7. FOLIC ACID [Concomitant]
     Dosage: 1 mg, UNK
  8. PLENDIL [Concomitant]
     Dosage: 5 mg, UNK
  9. TOPROL [Concomitant]
     Dosage: 25 mg, UNK
  10. LATANOPROST [Concomitant]
     Dosage: 0.005 %, UNK
  11. ISOPTO TEARS                       /00445101/ [Concomitant]
     Dosage: 0.5 %, UNK
  12. CALCIUM                            /00060701/ [Concomitant]
     Dosage: UNK
  13. ASPIRIN [Concomitant]
     Dosage: 81 mg, UNK
  14. ALTACE [Concomitant]
     Dosage: 1.25 mg, UNK

REACTIONS (1)
  - Gastroenteritis viral [Recovered/Resolved]
